FAERS Safety Report 12541535 (Version 1)
Quarter: 2016Q3

REPORT INFORMATION
  Report Type: Spontaneous
  Country: DE (occurrence: DE)
  Receive Date: 20160708
  Receipt Date: 20160708
  Transmission Date: 20161109
  Serious: Yes (Congenital Anomaly, Other)
  Sender: FDA-Public Use
  Company Number: DE-TEVA-672270GER

PATIENT
  Age: 1 Day
  Sex: Female
  Weight: 2.22 kg

DRUGS (7)
  1. AMPICILLIN [Concomitant]
     Active Substance: AMPICILLIN
     Indication: INFECTION PROPHYLAXIS
     Dosage: 36.2. - 36.2. GESTATIONAL WEEK
     Route: 064
     Dates: start: 20151119, end: 20151119
  2. ESCITALOPRAM [Suspect]
     Active Substance: ESCITALOPRAM OXALATE
     Indication: DEPRESSION
     Dosage: 10MG/DAY; INTERMITTENTLY 7.5 MG/D FOR A SHORT TIME PERIOD;  0. - 36.2. GESTATIONAL WEEK
     Route: 064
     Dates: start: 20150310, end: 20151119
  3. FEMIBION SCHWANGERSCHAFT 1 [Concomitant]
     Indication: PROPHYLAXIS OF NEURAL TUBE DEFECT
     Dosage: .8 MILLIGRAM DAILY;
     Route: 064
  4. L-THYROXIN [Concomitant]
     Active Substance: LEVOTHYROXINE SODIUM
     Indication: HYPOTHYROIDISM
     Dosage: 75 MICROGRAM DAILY; 0. - 36.2. GESTATIONAL WEEK
     Route: 064
     Dates: start: 20150310, end: 20151119
  5. DEKRISTOL [Concomitant]
     Active Substance: CHOLECALCIFEROL
     Indication: OSTEOPOROSIS PROPHYLAXIS
     Route: 064
     Dates: start: 20150310, end: 20150413
  6. DECORTIN-H [Suspect]
     Active Substance: PREDNISOLONE HEMISUCCINATE
     Indication: SARCOIDOSIS
     Dosage: 5.5MG/DAY; MINIMUM DOSAGE 5 MG/D; 0. - 36.2. GESTATIONAL WEEK
     Route: 064
     Dates: start: 20150310, end: 20151119
  7. CYTOTEC [Concomitant]
     Active Substance: MISOPROSTOL
     Indication: LABOUR INDUCTION
     Dosage: 36.2. - 36.2. GESTATIONAL WEEK
     Route: 064
     Dates: start: 20151119, end: 20151119

REACTIONS (5)
  - Respiratory disorder neonatal [Recovered/Resolved]
  - Bradycardia neonatal [Recovered/Resolved]
  - Kidney duplex [Not Recovered/Not Resolved]
  - Foetal exposure during pregnancy [Unknown]
  - Congenital hydronephrosis [Unknown]

NARRATIVE: CASE EVENT DATE: 20151119
